FAERS Safety Report 12602569 (Version 1)
Quarter: 2016Q3

REPORT INFORMATION
  Report Type: Spontaneous
  Country: RU (occurrence: RU)
  Receive Date: 20160728
  Receipt Date: 20160728
  Transmission Date: 20161109
  Serious: Yes (Life-Threatening)
  Sender: FDA-Public Use
  Company Number: RU-ASTRAZENECA-2016SE79755

PATIENT
  Age: 232 Week
  Sex: Female

DRUGS (4)
  1. CORTEXIN [Concomitant]
     Active Substance: SUS SCROFA CEREBRAL CORTEX
  2. PULMICORT TURBUHALER [Suspect]
     Active Substance: BUDESONIDE
     Indication: DYSPNOEA
     Dosage: 2.0MG ONCE/SINGLE ADMINISTRATION
     Route: 055
     Dates: start: 20160718, end: 20160718
  3. PULMICORT TURBUHALER [Suspect]
     Active Substance: BUDESONIDE
     Indication: RALES
     Dosage: 2.0MG ONCE/SINGLE ADMINISTRATION
     Route: 055
     Dates: start: 20160718, end: 20160718
  4. PULMICORT TURBUHALER [Suspect]
     Active Substance: BUDESONIDE
     Indication: COUGH
     Dosage: 2.0MG ONCE/SINGLE ADMINISTRATION
     Route: 055
     Dates: start: 20160718, end: 20160718

REACTIONS (3)
  - Asthma [Unknown]
  - Overdose [Unknown]
  - Dyspnoea [Recovering/Resolving]

NARRATIVE: CASE EVENT DATE: 20160718
